FAERS Safety Report 24319788 (Version 1)
Quarter: 2024Q3

REPORT INFORMATION
  Report Type: Spontaneous
  Country: US (occurrence: US)
  Receive Date: 20240914
  Receipt Date: 20240914
  Transmission Date: 20241017
  Serious: Yes (Death)
  Sender: ROCHE
  Company Number: US-ROCHE-10000076506

PATIENT
  Sex: Male

DRUGS (1)
  1. ACTEMRA ACTPEN [Suspect]
     Active Substance: TOCILIZUMAB
     Indication: Giant cell arteritis
     Dosage: STRENGTH- 162MG/0.9ML?FREQUENCY-INJECT 1 PEN UNDER THE SKIN ONCE WEEKLY
     Route: 058
     Dates: start: 20240710

REACTIONS (1)
  - Death [Fatal]
